FAERS Safety Report 23167763 (Version 2)
Quarter: 2023Q4

REPORT INFORMATION
  Report Type: Report from Study
  Country: AU (occurrence: AU)
  Receive Date: 20231109
  Receipt Date: 20231116
  Transmission Date: 20240109
  Serious: Yes (Other)
  Sender: FDA-Public Use
  Company Number: AU-JNJFOC-20231076520

PATIENT
  Age: 52 Year
  Sex: Female
  Weight: 67.2 kg

DRUGS (6)
  1. AMIVANTAMAB [Suspect]
     Active Substance: AMIVANTAMAB
     Indication: Non-small cell lung cancer
     Dosage: MOST RECENT DOSE: 16-OCT-2023
     Route: 042
     Dates: start: 20230905
  2. VITAMINS [Concomitant]
     Active Substance: VITAMINS
     Indication: Routine health maintenance
     Route: 048
     Dates: start: 20220101
  3. METOCLOPRAMIDE HYDROCHLORIDE [Concomitant]
     Active Substance: METOCLOPRAMIDE HYDROCHLORIDE
     Indication: Nausea
     Route: 048
     Dates: start: 20230906
  4. MAXIGESIC [IBUPROFEN;PARACETAMOL] [Concomitant]
     Indication: Headache
     Route: 048
     Dates: start: 20230914
  5. APIXABAN [Concomitant]
     Active Substance: APIXABAN
     Indication: Anticoagulant therapy
     Route: 048
     Dates: start: 20231003
  6. DOXYCYCLINE [Concomitant]
     Active Substance: DOXYCYCLINE
     Indication: Dermatitis acneiform
     Route: 048
     Dates: start: 20230925, end: 20231030

REACTIONS (1)
  - Liver function test abnormal [Not Recovered/Not Resolved]

NARRATIVE: CASE EVENT DATE: 20231028
